FAERS Safety Report 5808049-9 (Version None)
Quarter: 2008Q3

REPORT INFORMATION
  Report Type: 
  Country: None (occurrence: None)
  Receive Date: 20080711
  Receipt Date: 20080630
  Transmission Date: 20090109
  Serious: Yes (Other)
  Sender: FDA-Public Use
  Company Number: US-PFIZER INC-2008055050

PATIENT
  Sex: Female
  Weight: 63.636 kg

DRUGS (6)
  1. LYRICA [Suspect]
     Indication: FIBROMYALGIA
  2. CALCIUM [Concomitant]
  3. VITAMIN TAB [Concomitant]
  4. GLUCOSAMINE [Concomitant]
  5. ANASTROZOLE [Concomitant]
  6. ASPIRIN [Concomitant]

REACTIONS (1)
  - MUSCLE ATROPHY [None]
